FAERS Safety Report 6394993-3 (Version None)
Quarter: 2009Q4

REPORT INFORMATION
  Report Type: 
  Country: None (occurrence: None)
  Receive Date: 20091009
  Receipt Date: 20091001
  Transmission Date: 20100525
  Serious: Yes (Hospitalization)
  Sender: FDA-Public Use
  Company Number: GB-BRISTOL-MYERS SQUIBB COMPANY-14771513

PATIENT
  Age: 65 Year
  Sex: Male

DRUGS (3)
  1. CETUXIMAB [Suspect]
     Indication: OESOPHAGEAL CARCINOMA
     Dosage: MOST RECENT INFUSION PRIOR TO ONSET OF THE EVENT IS ON 26AUG09 (DAY 8 OF CYCLE 2).
     Route: 042
     Dates: start: 20090729
  2. CISPLATIN [Suspect]
     Indication: OESOPHAGEAL CARCINOMA
     Dosage: LAST INFUSION PRIOR TO ONSET OF THE EVENT WAS ON 19AUG09 (DAY 1 OF CYCLE 2).
     Route: 042
  3. CAPECITABINE [Suspect]
     Indication: OESOPHAGEAL CARCINOMA
     Dosage: LAST INFUSION PRIOR TO ONSET OF THE EVENT WAS ON 19AUG09 (DAY 1 OF CYCLE 2);TABLET
     Route: 048

REACTIONS (1)
  - ARTERIAL THROMBOSIS LIMB [None]
